FAERS Safety Report 8776362 (Version 1)
Quarter: 2012Q4

REPORT INFORMATION
  Report Type: 
  Country: US (occurrence: US)
  Receive Date: 20120910
  Receipt Date: 20120910
  Transmission Date: 20130627
  Serious: Yes (Other)
  Sender: FDA-Public Use
  Company Number: US-PFIZER INC-2012221174

PATIENT
  Age: 54 Year
  Sex: Male
  Weight: 72.56 kg

DRUGS (4)
  1. CELEBREX [Suspect]
     Indication: MIGRAINE
     Dosage: 200 mg, 1x/day
  2. TESTOSTERONE CIPIONATE [Suspect]
     Indication: BLOOD TESTOSTERONE DECREASED
     Dosage: UNK
  3. HYDROCORTISONE SODIUM SUCCINATE [Suspect]
     Indication: BLOOD TESTOSTERONE DECREASED
     Dosage: UNK
  4. DEPAKOTE ER [Suspect]
     Indication: MIGRAINE
     Dosage: 500 mg, 2x/day

REACTIONS (2)
  - Hypertension [Unknown]
  - Blood testosterone decreased [Unknown]
